FAERS Safety Report 9320488 (Version 1)
Quarter: 2013Q2

REPORT INFORMATION
  Report Type: Spontaneous
  Country: AT (occurrence: AT)
  Receive Date: 20130530
  Receipt Date: 20130530
  Transmission Date: 20140414
  Serious: Yes (Hospitalization)
  Sender: FDA-Public Use
  Company Number: AT-BRISTOL-MYERS SQUIBB COMPANY-18959700

PATIENT
  Age: 57 Year
  Sex: Female
  Weight: 45 kg

DRUGS (2)
  1. ERBITUX SOLN FOR INF [Suspect]
     Indication: TONGUE CANCER RECURRENT
     Route: 042
  2. CARBOPLATIN [Concomitant]
     Indication: TONGUE CANCER RECURRENT

REACTIONS (3)
  - Cold sweat [Recovered/Resolved]
  - Hypotension [Recovered/Resolved]
  - Urticaria [Recovered/Resolved]
